FAERS Safety Report 11153328 (Version 1)
Quarter: 2015Q2

REPORT INFORMATION
  Report Type: Spontaneous
  Country: US (occurrence: US)
  Receive Date: 20150601
  Receipt Date: 20150601
  Transmission Date: 20150821
  Serious: No
  Sender: FDA-Public Use
  Company Number: US-TEVA-562383USA

PATIENT
  Sex: Female

DRUGS (1)
  1. NUVIGIL [Suspect]
     Active Substance: ARMODAFINIL
     Route: 048
     Dates: end: 201504

REACTIONS (3)
  - Feeling abnormal [Unknown]
  - Drug dose omission [Unknown]
  - Unable to afford prescribed medication [Unknown]
